FAERS Safety Report 5155022-2 (Version None)
Quarter: 2006Q4

REPORT INFORMATION
  Report Type: 
  Country: None (occurrence: None)
  Receive Date: 20061121
  Receipt Date: 20060405
  Transmission Date: 20070319
  Serious: Yes (Death, Hospitalization, Other)
  Sender: FDA-Public Use
  Company Number: PHEH2006US04515

PATIENT
  Age: 83 Year
  Sex: Female

DRUGS (4)
  1. STEROIDS NOS [Concomitant]
  2. ZOMETA [Suspect]
     Indication: MULTIPLE MYELOMA
     Dosage: 4 MG, Q4WKS
     Dates: start: 20030916, end: 20060320
  3. MELPHALAN [Concomitant]
     Indication: MULTIPLE MYELOMA
     Dosage: 4 MG EVERYDAY FOR 5 DAYS MONTHLY
     Route: 048
     Dates: start: 20040201, end: 20040901
  4. VELCADE [Concomitant]
     Indication: MULTIPLE MYELOMA
     Dosage: 1.3 MG/M2, DAYS 1, 4, 8, 11 EVERY 3 WEEKS
     Dates: start: 20041001, end: 20041101

REACTIONS (10)
  - BONE DISORDER [None]
  - CHILLS [None]
  - DEATH [None]
  - EATING DISORDER [None]
  - ERYTHEMA [None]
  - OSTEOMYELITIS [None]
  - OSTEONECROSIS [None]
  - PAIN IN JAW [None]
  - PYREXIA [None]
  - SWELLING [None]
